FAERS Safety Report 12531206 (Version 1)
Quarter: 2016Q3

REPORT INFORMATION
  Report Type: Spontaneous
  Country: JP (occurrence: JP)
  Receive Date: 20160706
  Receipt Date: 20160706
  Transmission Date: 20161109
  Serious: Yes (Hospitalization)
  Sender: FDA-Public Use
  Company Number: JP-PFIZER INC-2016324721

PATIENT

DRUGS (2)
  1. LEVOFLOXACIN PFIZER [Suspect]
     Active Substance: LEVOFLOXACIN
     Route: 048
  2. MAGNESIUM [Concomitant]
     Active Substance: MAGNESIUM
     Route: 048

REACTIONS (3)
  - Therapeutic response decreased [Unknown]
  - Drug ineffective [None]
  - Pneumonia [Unknown]
